FAERS Safety Report 13517692 (Version 15)
Quarter: 2021Q3

REPORT INFORMATION
  Report Type: Spontaneous
  Country: US (occurrence: US)
  Receive Date: 20170505
  Receipt Date: 20210806
  Transmission Date: 20211014
  Serious: No
  Sender: FDA-Public Use
  Company Number: US-PFIZER INC-2017199380

PATIENT
  Age: 61 Year
  Sex: Female
  Weight: 75.3 kg

DRUGS (4)
  1. RELPAX [Suspect]
     Active Substance: ELETRIPTAN HYDROBROMIDE
     Dosage: 40 MG, AS NEEDED (MAY REPEAT IN 2 HOURS IF NECESSARY)
     Route: 048
  2. DEXILANT [Concomitant]
     Active Substance: DEXLANSOPRAZOLE
     Indication: GASTROOESOPHAGEAL REFLUX DISEASE
     Dosage: 60 MG, 1X/DAY
     Route: 048
     Dates: start: 2012
  3. RELPAX [Suspect]
     Active Substance: ELETRIPTAN HYDROBROMIDE
     Indication: OPHTHALMIC MIGRAINE
     Dosage: 40 MG, AS NEEDED
     Route: 048
     Dates: start: 1998
  4. RELPAX [Suspect]
     Active Substance: ELETRIPTAN HYDROBROMIDE
     Indication: MIGRAINE
     Dosage: 20 MG, UNK
     Route: 048
     Dates: start: 1998, end: 1998

REACTIONS (6)
  - General physical health deterioration [Unknown]
  - Weight increased [Unknown]
  - Product dispensing error [Unknown]
  - Drug ineffective [Unknown]
  - Illness [Unknown]
  - Road traffic accident [Unknown]
